FAERS Safety Report 23947563 (Version 2)
Quarter: 2024Q2

REPORT INFORMATION
  Report Type: Spontaneous
  Country: US (occurrence: US)
  Receive Date: 20240606
  Receipt Date: 20240612
  Transmission Date: 20240716
  Serious: No
  Sender: FDA-Public Use
  Company Number: US-MYLANLABS-2024M1048891

PATIENT

DRUGS (3)
  1. METOPROLOL [Suspect]
     Active Substance: METOPROLOL
     Indication: Serotonin syndrome
     Dosage: 50 MILLIGRAM
     Route: 065
  2. ALPRAZOLAM [Suspect]
     Active Substance: ALPRAZOLAM
     Indication: Serotonin syndrome
     Dosage: UNK
     Route: 065
  3. CYPROHEPTADINE [Suspect]
     Active Substance: CYPROHEPTADINE
     Indication: Serotonin syndrome
     Dosage: UNK
     Route: 065

REACTIONS (1)
  - Off label use [Unknown]
